FAERS Safety Report 8176394-0 (Version None)
Quarter: 2012Q1

REPORT INFORMATION
  Report Type: 
  Country: None (occurrence: None)
  Receive Date: 20120228
  Receipt Date: 20120216
  Transmission Date: 20120608
  Serious: Yes (Other)
  Sender: FDA-Public Use
  Company Number: 2012SP009042

PATIENT
  Sex: Female

DRUGS (4)
  1. PEGASYS [Suspect]
     Indication: HEPATITIS C
     Dates: start: 20120112
  2. PEGASYS [Suspect]
     Indication: HEPATITIS C
     Dates: start: 20100101, end: 20101201
  3. RIBAVIRIN [Suspect]
     Indication: HEPATITIS C
     Dates: start: 20120112
  4. RIBAVIRIN [Suspect]
     Indication: HEPATITIS C
     Dates: start: 20100101, end: 20101201

REACTIONS (5)
  - DISEASE RECURRENCE [None]
  - ABORTION SPONTANEOUS [None]
  - MATERNAL EXPOSURE DURING PREGNANCY [None]
  - HEPATITIS C [None]
  - PREGNANCY [None]
